FAERS Safety Report 7417499-9 (Version None)
Quarter: 2011Q2

REPORT INFORMATION
  Report Type: 
  Country: None (occurrence: None)
  Receive Date: 20110412
  Receipt Date: 20110412
  Transmission Date: 20111010
  Serious: Yes (Hospitalization)
  Sender: FDA-Public Use
  Company Number: None

PATIENT
  Sex: Male
  Weight: 70.5 kg

DRUGS (4)
  1. VINCRISTINE SULFATE [Suspect]
     Dosage: 44 MG
  2. MERCAPTOPURINE [Suspect]
     Dosage: 26450 MG
  3. METHOTREXATE [Suspect]
     Dosage: 427.5 MG
  4. DEXAMETHAXONE [Suspect]
     Dosage: 1320 MG

REACTIONS (7)
  - ALANINE AMINOTRANSFERASE INCREASED [None]
  - SERUM FERRITIN INCREASED [None]
  - BACK PAIN [None]
  - FEELING ABNORMAL [None]
  - ASPARTATE AMINOTRANSFERASE INCREASED [None]
  - PORTAL HYPERTENSION [None]
  - JAUNDICE [None]
